FAERS Safety Report 9849712 (Version 3)
Quarter: 2014Q1

REPORT INFORMATION
  Report Type: Spontaneous
  Country: US (occurrence: US)
  Receive Date: 20140128
  Receipt Date: 20140228
  Transmission Date: 20141002
  Serious: No
  Sender: FDA-Public Use
  Company Number: US-PFIZER INC-2014023259

PATIENT
  Age: 76 Year
  Sex: Female
  Weight: 74.83 kg

DRUGS (5)
  1. PREMARIN [Suspect]
     Indication: PELVIC DISCOMFORT
     Dosage: 2 G, 1X/DAY
     Route: 067
     Dates: start: 20140122, end: 20140201
  2. PREMARIN [Suspect]
     Indication: ATROPHIC VULVOVAGINITIS
  3. LANTUS SOLOSTAR [Concomitant]
     Indication: DIABETES MELLITUS
     Dosage: 35 IU, 1X/DAY
  4. HUMALOG [Concomitant]
     Indication: DIABETES MELLITUS
     Dosage: 15 IU, DAILY (THICE A DAY)
  5. LIPITOR [Concomitant]
     Indication: BLOOD CHOLESTEROL INCREASED
     Dosage: 20 MG, 1X/DAY

REACTIONS (3)
  - Pain [Unknown]
  - Product quality issue [Unknown]
  - Incorrect dose administered [Unknown]
